FAERS Safety Report 4301906-4 (Version None)
Quarter: 2004Q1

REPORT INFORMATION
  Report Type: 
  Country: None (occurrence: None)
  Receive Date: 20040218
  Receipt Date: 20031119
  Transmission Date: 20041129
  Serious: Yes (Other)
  Sender: FDA-Public Use
  Company Number: 200319968US

PATIENT
  Age: 69 Year
  Sex: Female
  Weight: 62.7 kg

DRUGS (9)
  1. LANTUS [Suspect]
     Indication: DIABETES MELLITUS INSULIN-DEPENDENT
     Dosage: 25 U HS
     Dates: start: 20031010
  2. HUMALOG [Concomitant]
  3. ALTACE [Concomitant]
  4. GLUCOSE (DEXTROL) [Concomitant]
  5. SYNTHROID [Concomitant]
  6. BEXTRA [Concomitant]
  7. CALCIUM CARBONATE (CALTRATE) [Concomitant]
  8. MATURE MULTIVITAMIN [Concomitant]
  9. VITAMIN C [Concomitant]

REACTIONS (8)
  - BLOOD GLUCOSE DECREASED [None]
  - COMA [None]
  - DYSKINESIA [None]
  - EATING DISORDER [None]
  - HYPOGLYCAEMIA [None]
  - HYPOGLYCAEMIC SEIZURE [None]
  - LOSS OF CONSCIOUSNESS [None]
  - VOMITING [None]
